FAERS Safety Report 6448547-0 (Version None)
Quarter: 2009Q4

REPORT INFORMATION
  Report Type: 
  Country: None (occurrence: None)
  Receive Date: 20091120
  Receipt Date: 20091110
  Transmission Date: 20100525
  Serious: Yes (Other)
  Sender: FDA-Public Use
  Company Number: BR-PFIZER INC-2009248921

PATIENT
  Age: 57 Year
  Sex: Female
  Weight: 80 kg

DRUGS (6)
  1. CITALOR [Suspect]
     Indication: ANGINA PECTORIS
     Dosage: 10 MG, 1X/DAY
     Route: 048
  2. CITALOR [Suspect]
     Indication: BLOOD CHOLESTEROL
  3. DILACORON [Concomitant]
     Dosage: UNK
  4. SUSTRATE [Concomitant]
     Dosage: UNK
  5. ZOLOFT [Concomitant]
  6. A.A.S. [Concomitant]
     Dosage: UNK

REACTIONS (2)
  - DRUG DISPENSING ERROR [None]
  - GASTROINTESTINAL CARCINOMA [None]
